FAERS Safety Report 6339033-7 (Version None)
Quarter: 2009Q3

REPORT INFORMATION
  Report Type: 
  Country: None (occurrence: None)
  Receive Date: 20090831
  Receipt Date: 20090729
  Transmission Date: 20100115
  Serious: No
  Sender: FDA-Public Use
  Company Number: MC200900269

PATIENT
  Sex: Female

DRUGS (1)
  1. CLEVIPREX [Suspect]
     Indication: HYPERTENSION
     Dosage: 1-2 MG/HR DOUBLED UP TO 8 ML/HR OR 8 MG (REPORTER UNSURE OF MAXIMUM DOSE), INTRAVENOUS
     Route: 042
     Dates: start: 20090729, end: 20090729

REACTIONS (1)
  - HYPOTENSION [None]
